FAERS Safety Report 6555460-7 (Version None)
Quarter: 2010Q1

REPORT INFORMATION
  Report Type: 
  Country: None (occurrence: None)
  Receive Date: 20100128
  Receipt Date: 20100126
  Transmission Date: 20100710
  Serious: Yes (Life-Threatening, Hospitalization)
  Sender: FDA-Public Use
  Company Number: DE-BAYER-200925915GPV

PATIENT
  Age: 69 Year
  Sex: Male
  Weight: 111 kg

DRUGS (9)
  1. CIPRO [Suspect]
     Indication: PYELONEPHRITIS
     Dosage: UNIT DOSE: 250 MG
     Route: 048
     Dates: start: 20081028, end: 20081030
  2. TORSEMIDE [Suspect]
     Indication: HYPERTENSION
     Dosage: UNIT DOSE: 10 MG
     Route: 048
     Dates: start: 20000101
  3. LISIHEXAL COMP [Suspect]
     Indication: HYPERTENSION
     Dosage: 20MG/12.5MG
     Route: 048
     Dates: start: 20000101, end: 20081030
  4. DIGIMED [Suspect]
     Indication: ATRIAL FIBRILLATION
     Dosage: UNIT DOSE: 0.07 MG
     Route: 048
     Dates: start: 20081030
  5. AGGRENOX [Concomitant]
     Indication: ISCHAEMIC HEART DISEASE PROPHYLAXIS
     Dosage: 200MG/25MG
     Route: 048
     Dates: start: 20020101
  6. ALLOPURINOL [Concomitant]
     Indication: HYPERURICAEMIA
     Dosage: UNIT DOSE: 300 MG
     Route: 048
     Dates: start: 20000101, end: 20081030
  7. SIMVASTATIN [Concomitant]
     Indication: DYSLIPIDAEMIA
     Dosage: UNIT DOSE: 40 MG
     Route: 048
     Dates: start: 20000101
  8. VERA [Concomitant]
     Indication: ATRIAL FIBRILLATION
     Dosage: UNIT DOSE: 80 MG
     Route: 048
     Dates: start: 20000101, end: 20081030
  9. DIGIMED [Concomitant]
     Dosage: UNIT DOSE: 0.07 MG
     Route: 048
     Dates: start: 19950101, end: 20081030

REACTIONS (5)
  - DIARRHOEA [None]
  - GENERAL PHYSICAL HEALTH DETERIORATION [None]
  - NAUSEA [None]
  - RENAL FAILURE [None]
  - VOMITING [None]
